FAERS Safety Report 18379995 (Version 1)
Quarter: 2020Q4

REPORT INFORMATION
  Report Type: Spontaneous
  Country: DE (occurrence: DE)
  Receive Date: 20201013
  Receipt Date: 20201013
  Transmission Date: 20210114
  Serious: Yes (Other)
  Sender: FDA-Public Use
  Company Number: DE-PFIZER INC-2020396382

PATIENT
  Sex: Male

DRUGS (2)
  1. BRAFTOVI [Suspect]
     Active Substance: ENCORAFENIB
     Indication: METASTATIC MALIGNANT MELANOMA
     Dosage: 6 DF, QD (1/DAY)
     Route: 048
  2. MEKTOVI [Suspect]
     Active Substance: BINIMETINIB
     Indication: METASTATIC MALIGNANT MELANOMA
     Dosage: 3 DF, BID (2/DAY)
     Route: 048

REACTIONS (2)
  - Macular degeneration [Not Recovered/Not Resolved]
  - Visual acuity reduced [Not Recovered/Not Resolved]
